FAERS Safety Report 11413928 (Version 3)
Quarter: 2015Q3

REPORT INFORMATION
  Report Type: Spontaneous
  Country: RS (occurrence: RS)
  Receive Date: 20150824
  Receipt Date: 20150910
  Transmission Date: 20151125
  Serious: Yes (Hospitalization)
  Sender: FDA-Public Use
  Company Number: RS-GLAXOSMITHKLINE-RS2015GSK118547

PATIENT
  Age: 29 Year
  Sex: Male
  Weight: 65 kg

DRUGS (2)
  1. KIVEXA [Suspect]
     Active Substance: ABACAVIR SULFATE\LAMIVUDINE
     Indication: HIV INFECTION
     Dosage: 1 DF, QD
     Route: 048
     Dates: start: 20150717, end: 20150723
  2. STOCRIN [Suspect]
     Active Substance: EFAVIRENZ
     Indication: HIV INFECTION
     Dosage: 1 UNK, QD
     Route: 048
     Dates: start: 20150717, end: 20150723

REACTIONS (3)
  - Dermatitis allergic [Recovered/Resolved]
  - Rash [Unknown]
  - Erythema [Recovered/Resolved]

NARRATIVE: CASE EVENT DATE: 20150720
